FAERS Safety Report 23505724 (Version 1)
Quarter: 2024Q1

REPORT INFORMATION
  Report Type: Spontaneous
  Country: CN (occurrence: CN)
  Receive Date: 20240209
  Receipt Date: 20240209
  Transmission Date: 20240409
  Serious: Yes (Disabling)
  Sender: FDA-Public Use
  Company Number: CN-SHANGHAI JUNSHI BIOSCIENCES CO., LTD.-CN2023008980

PATIENT

DRUGS (9)
  1. TORIPALIMAB [Suspect]
     Active Substance: TORIPALIMAB
     Indication: Bladder transitional cell carcinoma
     Dosage: 240 MG (D1)
     Route: 041
     Dates: start: 20231124
  2. TORIPALIMAB [Suspect]
     Active Substance: TORIPALIMAB
     Dosage: 240 MG (D1)
     Route: 041
     Dates: start: 20231220
  3. TORIPALIMAB [Suspect]
     Active Substance: TORIPALIMAB
     Dosage: 240 MG
     Route: 041
     Dates: start: 20240111, end: 20240111
  4. GEMCITABINE HYDROCHLORIDE [Suspect]
     Active Substance: GEMCITABINE HYDROCHLORIDE
     Indication: Bladder transitional cell carcinoma
     Dosage: 1.8 G (D1, D8), 21 DAYS A CYCLE
     Route: 041
     Dates: start: 20231124
  5. GEMCITABINE HYDROCHLORIDE [Suspect]
     Active Substance: GEMCITABINE HYDROCHLORIDE
     Dosage: 1.8 G (D1, D8), 21 DAYS A CYCLE
     Route: 041
     Dates: start: 20231220
  6. GEMCITABINE HYDROCHLORIDE [Suspect]
     Active Substance: GEMCITABINE HYDROCHLORIDE
     Dosage: 1.8 G
     Route: 041
     Dates: start: 20240111, end: 20240111
  7. CISPLATIN [Suspect]
     Active Substance: CISPLATIN
     Indication: Bladder transitional cell carcinoma
     Dosage: 40 MG (D1-D3), 21 DAYS A CYCLE
     Route: 041
     Dates: start: 20231124
  8. CISPLATIN [Suspect]
     Active Substance: CISPLATIN
     Dosage: 40 MG (D1-D3), 21 DAYS A CYCLE
     Route: 041
     Dates: start: 20231220, end: 20231222
  9. NEDAPLATIN [Suspect]
     Active Substance: NEDAPLATIN
     Indication: Bladder transitional cell carcinoma
     Dosage: 110 MG
     Route: 041
     Dates: start: 20240111, end: 20240111

REACTIONS (3)
  - Myelosuppression [Recovering/Resolving]
  - Renal injury [Not Recovered/Not Resolved]
  - Off label use [Unknown]

NARRATIVE: CASE EVENT DATE: 20231124
